FAERS Safety Report 8517838-1 (Version None)
Quarter: 2012Q3

REPORT INFORMATION
  Report Type: 
  Country: None (occurrence: None)
  Receive Date: 20120718
  Receipt Date: 20120419
  Transmission Date: 20120928
  Serious: Yes (Other)
  Sender: FDA-Public Use
  Company Number: US-ASTRAZENECA-2012SE48927

PATIENT
  Age: 11 Month
  Sex: Male

DRUGS (1)
  1. LIDOCAINE [Suspect]
     Dosage: 10.1 MG/KG
     Route: 028

REACTIONS (2)
  - ACCIDENTAL OVERDOSE [None]
  - GRAND MAL CONVULSION [None]
